FAERS Safety Report 23097277 (Version 1)
Quarter: 2023Q4

REPORT INFORMATION
  Report Type: Spontaneous
  Country: US (occurrence: US)
  Receive Date: 20231023
  Receipt Date: 20231023
  Transmission Date: 20240110
  Serious: Yes (Hospitalization, Other)
  Sender: FDA-Public Use
  Company Number: US-MLMSERVICE-20231009-4584080-1

PATIENT
  Sex: Male

DRUGS (6)
  1. METHOTREXATE [Suspect]
     Active Substance: METHOTREXATE
     Indication: Rheumatoid arthritis
  2. PREDNISONE [Suspect]
     Active Substance: PREDNISONE
     Indication: Rheumatoid arthritis
  3. LEFLUNOMIDE [Suspect]
     Active Substance: LEFLUNOMIDE
     Indication: Rheumatoid arthritis
  4. METHOTREXATE [Suspect]
     Active Substance: METHOTREXATE
     Indication: Rheumatoid arthritis
     Dosage: SUDDEN INCREASE IN HIS RA IMMUNOSUPPRESSANTS
  5. LEFLUNOMIDE [Suspect]
     Active Substance: LEFLUNOMIDE
     Indication: Rheumatoid arthritis
     Dosage: SUDDEN INCREASE IN HIS RA IMMUNOSUPPRESSANTS
  6. PREDNISONE [Suspect]
     Active Substance: PREDNISONE
     Indication: Rheumatoid arthritis
     Dosage: SUDDEN INCREASE IN HIS RA IMMUNOSUPPRESSANTS

REACTIONS (5)
  - Acute respiratory failure [Unknown]
  - Pneumonia klebsiella [Unknown]
  - Superinfection [Unknown]
  - Pneumonia cryptococcal [Recovering/Resolving]
  - Klebsiella sepsis [Unknown]
